FAERS Safety Report 20111127 (Version 1)
Quarter: 2021Q4

REPORT INFORMATION
  Report Type: Spontaneous
  Country: US (occurrence: US)
  Receive Date: 20211125
  Receipt Date: 20211125
  Transmission Date: 20220303
  Serious: Yes (Other)
  Sender: FDA-Public Use
  Company Number: US-BoehringerIngelheim-2021-BI-140061

PATIENT

DRUGS (1)
  1. JARDIANCE [Suspect]
     Active Substance: EMPAGLIFLOZIN
     Indication: Product used for unknown indication

REACTIONS (5)
  - Diabetes mellitus [Unknown]
  - Plantar fasciitis [Unknown]
  - Rheumatoid arthritis [Unknown]
  - Thyroid disorder [Unknown]
  - Renal disorder [Unknown]
